FAERS Safety Report 5417232-6 (Version None)
Quarter: 2007Q3

REPORT INFORMATION
  Report Type: 
  Country: None (occurrence: None)
  Receive Date: 20070816
  Receipt Date: 20070815
  Transmission Date: 20080115
  Serious: Yes (Death, Other)
  Sender: FDA-Public Use
  Company Number: US-SHR-US-2007-006368

PATIENT
  Age: 56 Year
  Sex: Female

DRUGS (27)
  1. MAGNEVIST [Suspect]
     Indication: ANGIOGRAM
     Dosage: UNK, 1 DOSE
     Route: 042
     Dates: start: 20011126, end: 20011126
  2. MAGNEVIST [Suspect]
     Dosage: 20 ML, 1 DOSE
     Route: 042
     Dates: start: 20021023, end: 20021023
  3. MAGNEVIST [Suspect]
     Dosage: 50 ML, 1 DOSE
     Route: 042
     Dates: start: 20041102, end: 20041102
  4. NORVASC [Concomitant]
  5. LISINOPRIL [Concomitant]
  6. PLAVIX [Concomitant]
  7. LASIX [Concomitant]
     Dosage: 20 MG, 1X/DAY
  8. ATENOLOL [Concomitant]
     Dosage: 25 MG, UNK
  9. ZESTRIL [Concomitant]
  10. GLYBURIDE [Concomitant]
  11. ALDACTONE [Concomitant]
  12. NITROGLYCERIN [Concomitant]
  13. ASPIRIN [Concomitant]
  14. ATORVASTATIN CALCIUM [Concomitant]
  15. ISORDIL [Concomitant]
  16. FOLIC ACID [Concomitant]
  17. PRILOSEC [Concomitant]
  18. NEURONTIN [Concomitant]
  19. TRAMADOL HCL [Concomitant]
  20. REGINOL [Concomitant]
     Dosage: 3200 MG, 3X/DAY
     Route: 048
  21. TUMS E-X [Concomitant]
  22. ACTONEL [Concomitant]
  23. PROCRIT [Concomitant]
     Dosage: UNK, 3X/WEEK
     Route: 042
  24. IRON [Concomitant]
  25. DEXTRAN [Concomitant]
     Dosage: UNK, 1X/WEEK
     Route: 042
  26. ULTRAVIST (PHARMACY BULK) [Concomitant]
     Dosage: 75 ML, 1 DOSE
  27. COUMADIN [Concomitant]

REACTIONS (1)
  - NEPHROGENIC SYSTEMIC FIBROSIS [None]
